FAERS Safety Report 8948766 (Version 2)
Quarter: 2013Q1

REPORT INFORMATION
  Report Type: Spontaneous
  Country: AT (occurrence: AT)
  Receive Date: 20121206
  Receipt Date: 20130208
  Transmission Date: 20140127
  Serious: Yes (Hospitalization)
  Sender: FDA-Public Use
  Company Number: AT-AMGEN-AUTSP2012076768

PATIENT
  Sex: Male

DRUGS (13)
  1. XGEVA [Suspect]
     Indication: METASTASES TO BONE
     Dosage: 120 MG, ONE TIME DOSE
     Dates: start: 20120920, end: 20120920
  2. TRANSTEC [Concomitant]
     Dosage: 35 MG, 2 TIMES/WK
  3. NOVALGIN                           /00169801/ [Concomitant]
     Dosage: 3 GTT, PRN
  4. INDERAL [Concomitant]
     Dosage: 10 MG, UNK
  5. CITALOPRAM [Concomitant]
     Dosage: 20 MG, UNK
  6. ALNA [Concomitant]
  7. CAL D VITA [Concomitant]
  8. ANTIBIOPHILUS [Concomitant]
  9. LASIX                              /00032601/ [Concomitant]
     Dosage: 40 MG, UNK
  10. PANTOLOC                           /01263204/ [Concomitant]
     Dosage: 40 MG, UNK
  11. MAGNESIUM [Concomitant]
     Dosage: UNK UNK, PRN
  12. INKONTAN [Concomitant]
     Dosage: 50 MG, UNK
  13. MOLAXOLE [Concomitant]

REACTIONS (4)
  - Subcutaneous abscess [Not Recovered/Not Resolved]
  - Abscess soft tissue [Unknown]
  - Impaired healing [Unknown]
  - Pain [Unknown]
